FAERS Safety Report 9188233 (Version 1)
Quarter: 2013Q1

REPORT INFORMATION
  Report Type: Spontaneous
  Country: US (occurrence: US)
  Receive Date: 20130325
  Receipt Date: 20130325
  Transmission Date: 20140127
  Serious: Yes (Hospitalization, Disabling, Other)
  Sender: FDA-Public Use
  Company Number: US-009507513-2011SP031366

PATIENT
  Sex: Female
  Weight: 50.8 kg

DRUGS (3)
  1. NUVARING [Suspect]
     Indication: CONTRACEPTION
     Dates: start: 2007, end: 20090816
  2. NUVARING [Suspect]
     Indication: MIGRAINE
     Dates: start: 200702, end: 200806
  3. NUVARING [Suspect]
     Dates: start: 200901, end: 200908

REACTIONS (12)
  - Cerebral artery occlusion [Unknown]
  - Cerebrovascular accident [Not Recovered/Not Resolved]
  - Rheumatoid arthritis [Not Recovered/Not Resolved]
  - Lyme disease [Unknown]
  - Cervical dysplasia [Not Recovered/Not Resolved]
  - Cognitive disorder [Not Recovered/Not Resolved]
  - Papilloma viral infection [Unknown]
  - Urinary tract infection [Unknown]
  - Cervicitis [Unknown]
  - Fibrocystic breast disease [Unknown]
  - Neuralgia [Unknown]
  - Anaemia [Unknown]
